FAERS Safety Report 7564999-7 (Version None)
Quarter: 2011Q2

REPORT INFORMATION
  Report Type: 
  Country: None (occurrence: None)
  Receive Date: 20110622
  Receipt Date: 20110412
  Transmission Date: 20111010
  Serious: Yes (Other)
  Sender: FDA-Public Use
  Company Number: US-MYLANLABS-2011S1005922

PATIENT
  Age: 56 Year
  Sex: Female

DRUGS (9)
  1. CLOZAPINE [Suspect]
     Indication: SCHIZOPHRENIA
     Route: 048
     Dates: start: 20090310, end: 20110407
  2. SYNTHROID [Concomitant]
     Route: 048
  3. MELATONIN [Concomitant]
     Route: 048
  4. MELATONIN [Concomitant]
     Route: 048
  5. DEPAKOTE [Concomitant]
     Route: 048
  6. ATIVAN [Concomitant]
     Route: 048
  7. AMBIEN [Concomitant]
     Route: 048
  8. HALCION [Concomitant]
     Route: 048
  9. TRAZODONE HCL [Concomitant]
     Route: 048

REACTIONS (2)
  - GRANULOCYTOPENIA [None]
  - LEUKOPENIA [None]
